FAERS Safety Report 20170623 (Version 2)
Quarter: 2021Q4

REPORT INFORMATION
  Report Type: Report from Study
  Country: IT (occurrence: IT)
  Receive Date: 20211210
  Receipt Date: 20211216
  Transmission Date: 20220303
  Serious: Yes (Other)
  Sender: FDA-Public Use
  Company Number: IT-JNJFOC-20211203261

PATIENT

DRUGS (6)
  1. SIMPONI [Suspect]
     Active Substance: GOLIMUMAB
     Indication: Colitis ulcerative
     Dosage: AT WEEK 0
     Route: 058
  2. SIMPONI [Suspect]
     Active Substance: GOLIMUMAB
     Dosage: AT WEEK 2
     Route: 058
  3. SIMPONI [Suspect]
     Active Substance: GOLIMUMAB
     Dosage: 100 OR 50 MG AT WEEK 6
     Route: 058
  4. REMICADE [Suspect]
     Active Substance: INFLIXIMAB
     Indication: Colitis ulcerative
     Route: 042
  5. VEDOLIZUMAB [Suspect]
     Active Substance: VEDOLIZUMAB
     Indication: Colitis ulcerative
     Route: 065
  6. ADALIMUMAB [Suspect]
     Active Substance: ADALIMUMAB
     Indication: Colitis ulcerative
     Route: 065

REACTIONS (12)
  - Breast cancer [Unknown]
  - Ovarian cancer [Unknown]
  - Psoriasis [Unknown]
  - Erythema nodosum [Unknown]
  - Hypersensitivity [Unknown]
  - Pyrexia [Unknown]
  - Folliculitis [Unknown]
  - Dermatitis [Unknown]
  - Pruritus [Unknown]
  - Dermatitis [Unknown]
  - Therapeutic response decreased [Unknown]
  - Drug ineffective [Unknown]
